FAERS Safety Report 5444270-X (Version None)
Quarter: 2007Q3

REPORT INFORMATION
  Report Type: 
  Country: None (occurrence: None)
  Receive Date: 20070904
  Receipt Date: 20070904
  Transmission Date: 20080115
  Serious: Yes (Hospitalization)
  Sender: FDA-Public Use
  Company Number: None

PATIENT
  Age: 35 Year
  Sex: Female
  Weight: 67.586 kg

DRUGS (1)
  1. ZONEGRAN [Suspect]
     Indication: CONVULSION
     Dosage: I THINK 800 4 AT BEDTIME
     Dates: start: 20070406, end: 20070608

REACTIONS (5)
  - HALLUCINATION [None]
  - INFLUENZA LIKE ILLNESS [None]
  - INSOMNIA [None]
  - ORAL INTAKE REDUCED [None]
  - PSYCHOTIC DISORDER [None]
